FAERS Safety Report 5713710-0 (Version None)
Quarter: 2008Q2

REPORT INFORMATION
  Report Type: 
  Country: None (occurrence: None)
  Receive Date: 20080421
  Receipt Date: 20080411
  Transmission Date: 20081010
  Serious: Yes (Other)
  Sender: FDA-Public Use
  Company Number: 2008009199

PATIENT
  Sex: Female

DRUGS (1)
  1. VISINE-A [Suspect]
     Indication: EYE ALLERGY
     Dosage: 1-2 DROPS TWICE DAILY, OPHTHALMIC
     Route: 047
     Dates: start: 20080407, end: 20080408

REACTIONS (2)
  - EYE IRRITATION [None]
  - INSTILLATION SITE IRRITATION [None]
